FAERS Safety Report 9909127 (Version 1)
Quarter: 2014Q1

REPORT INFORMATION
  Report Type: Spontaneous
  Country: BE (occurrence: BE)
  Receive Date: 20140219
  Receipt Date: 20140219
  Transmission Date: 20141002
  Serious: Yes (Death, Hospitalization)
  Sender: FDA-Public Use
  Company Number: BE-PFIZER INC-2014040506

PATIENT
  Age: 71 Year
  Sex: Female

DRUGS (1)
  1. GEMCITABINE HYDROCHLORIDE [Suspect]
     Indication: PANCREATIC CARCINOMA METASTATIC
     Dosage: 2700 MG BY A 30-MIN INFUSION
     Route: 042

REACTIONS (2)
  - Haemolytic uraemic syndrome [Fatal]
  - Thrombotic thrombocytopenic purpura [Fatal]
